FAERS Safety Report 6270445-6 (Version None)
Quarter: 2009Q3

REPORT INFORMATION
  Report Type: 
  Country: None (occurrence: None)
  Receive Date: 20090716
  Receipt Date: 20090708
  Transmission Date: 20100115
  Serious: Yes (Other)
  Sender: FDA-Public Use
  Company Number: PHEH2009US07258

PATIENT
  Age: 66 Year
  Sex: Male
  Weight: 80.726 kg

DRUGS (5)
  1. ENABLEX [Suspect]
     Indication: POLLAKIURIA
     Dosage: 15 MG/DAY
     Route: 048
     Dates: start: 20090704
  2. BENICAR [Concomitant]
     Dosage: 40 UNK, UNK
  3. ZOCOR [Concomitant]
     Dosage: 40 UNK, UNK
  4. SINGULAIR [Concomitant]
     Dosage: 10 UNK, UNK
  5. KLONOPIN [Concomitant]
     Indication: ANXIETY DISORDER
     Dosage: 3.5 UNK, AM (FOR YEARS)

REACTIONS (4)
  - BACK PAIN [None]
  - HAEMORRHAGE [None]
  - HEAD INJURY [None]
  - SYNCOPE [None]
